FAERS Safety Report 16674246 (Version 2)
Quarter: 2019Q3

REPORT INFORMATION
  Report Type: Spontaneous
  Country: AU (occurrence: AU)
  Receive Date: 20190806
  Receipt Date: 20190822
  Transmission Date: 20191004
  Serious: Yes (Disabling)
  Sender: FDA-Public Use
  Company Number: AU-ALEMBIC PHARMACUETICALS LIMITED-2019SCAL000502

PATIENT

DRUGS (4)
  1. LYRICA [Concomitant]
     Active Substance: PREGABALIN
     Indication: MIGRAINE
     Dosage: 225MG TWICE PER DAY
  2. FENTANYL TRANSDERMAL SYSTEM [Concomitant]
     Active Substance: FENTANYL
     Indication: MIGRAINE
     Dosage: 25 MICROGRAM EVERY 3 DAYS
  3. DULOXETINE HYDROCHLORIDE. [Suspect]
     Active Substance: DULOXETINE HYDROCHLORIDE
     Indication: MIGRAINE
     Dosage: DULOXETINE 60MG IN THE MORNING
  4. TAPENTADOL [Concomitant]
     Active Substance: TAPENTADOL
     Indication: MIGRAINE
     Dosage: 150MG TWICE PER DAY

REACTIONS (1)
  - Migraine [Unknown]
